FAERS Safety Report 7226534-2 (Version None)
Quarter: 2010Q4

REPORT INFORMATION
  Report Type: 
  Country: None (occurrence: None)
  Receive Date: 20101126
  Receipt Date: 20100917
  Transmission Date: 20110411
  Serious: No
  Sender: FDA-Public Use
  Company Number: 315187

PATIENT
  Age: 56 Year
  Sex: Female

DRUGS (4)
  1. VICTOZA [Suspect]
     Indication: TYPE 2 DIABETES MELLITUS
     Dosage: 0.6 MG, QD, SUBCUTANEOUS
     Route: 058
     Dates: start: 20100910
  2. METFORMIN HCL [Concomitant]
  3. LISINOPRIL [Concomitant]
  4. CRESTOR [Concomitant]

REACTIONS (2)
  - APPETITE DISORDER [None]
  - BLOOD GLUCOSE DECREASED [None]
